FAERS Safety Report 6572564-3 (Version None)
Quarter: 2010Q1

REPORT INFORMATION
  Report Type: 
  Country: None (occurrence: None)
  Receive Date: 20100205
  Receipt Date: 20100105
  Transmission Date: 20100710
  Serious: No
  Sender: FDA-Public Use
  Company Number: US-BAYER-201010467BCC

PATIENT
  Age: 30 Year
  Sex: Female
  Weight: 54 kg

DRUGS (3)
  1. ALEVE (CAPLET) [Suspect]
     Indication: RIB FRACTURE
     Route: 048
     Dates: start: 20090901, end: 20090901
  2. ALEVE (CAPLET) [Suspect]
     Dosage: TOTAL DAILY DOSE: 440 MG  UNIT DOSE: 220 MG
     Route: 048
     Dates: start: 20100103, end: 20100103
  3. ALEVE (CAPLET) [Suspect]
     Dosage: TOTAL DAILY DOSE: 440 MG  UNIT DOSE: 220 MG
     Route: 048
     Dates: start: 20100104

REACTIONS (1)
  - DYSPEPSIA [None]
